FAERS Safety Report 8543536-4 (Version None)
Quarter: 2012Q3

REPORT INFORMATION
  Report Type: 
  Country: None (occurrence: None)
  Receive Date: 20120727
  Receipt Date: 20120716
  Transmission Date: 20120928
  Serious: Yes (Hospitalization)
  Sender: FDA-Public Use
  Company Number: US-BAYER-2012-072909

PATIENT
  Age: 21 Year
  Sex: Female

DRUGS (9)
  1. ADDERALL 5 [Concomitant]
     Dosage: 20 MG, BID (IN THE MORNING)
  2. METFORMIN HYDROCHLORIDE [Concomitant]
     Indication: POLYCYSTIC OVARIES
     Dosage: 750 MG, BID
  3. BYSTOLIC [Concomitant]
     Dosage: 5 MG, BID
  4. SINGULAIR [Concomitant]
     Dosage: 10 MG, DAILY
  5. ZANTAC [Concomitant]
     Dosage: 150 MG, DAILY
  6. YASMIN [Suspect]
     Indication: CONTRACEPTION
  7. YAZ [Suspect]
     Indication: CONTRACEPTION
  8. BEYAZ [Suspect]
     Indication: CONTRACEPTION
  9. ADDERALL 5 [Concomitant]
     Dosage: 10 MG, IN THE EVENING

REACTIONS (1)
  - DEEP VEIN THROMBOSIS [None]
